FAERS Safety Report 11674379 (Version 1)
Quarter: 2015Q4

REPORT INFORMATION
  Report Type: Spontaneous
  Country: US (occurrence: US)
  Receive Date: 20151028
  Receipt Date: 20151028
  Transmission Date: 20160304
  Serious: No
  Sender: FDA-Public Use
  Company Number: US-PFIZER INC-2015329268

PATIENT
  Sex: Female

DRUGS (1)
  1. TIKOSYN [Suspect]
     Active Substance: DOFETILIDE
     Indication: ATRIAL FIBRILLATION
     Dosage: 500 ?G, 1X/DAY

REACTIONS (7)
  - Vomiting [Unknown]
  - Diarrhoea [Unknown]
  - Drug level changed [Unknown]
  - Weight decreased [Unknown]
  - Abdominal discomfort [Not Recovered/Not Resolved]
  - Dehydration [Unknown]
  - Drug ineffective [Unknown]
